FAERS Safety Report 24900864 (Version 6)
Quarter: 2025Q4

REPORT INFORMATION
  Report Type: Spontaneous
  Country: JP (occurrence: JP)
  Receive Date: 20250129
  Receipt Date: 20251224
  Transmission Date: 20260118
  Serious: Yes (Other)
  Sender: BRISTOL-MYERS SQUIBB COMPANY
  Company Number: JP-BRISTOL-MYERS SQUIBB COMPANY-2025-011147

PATIENT

DRUGS (1)
  1. BREYANZI [Suspect]
     Active Substance: LISOCABTAGENE MARALEUCEL
     Indication: Diffuse large B-cell lymphoma
     Route: 041
     Dates: start: 20250116, end: 20250116

REACTIONS (3)
  - Blindness [Unknown]
  - Cytokine release syndrome [Recovered/Resolved]
  - B-lymphocyte abnormalities [Unknown]

NARRATIVE: CASE EVENT DATE: 20250101
